FAERS Safety Report 7085547-4 (Version None)
Quarter: 2010Q4

REPORT INFORMATION
  Report Type: 
  Country: None (occurrence: None)
  Receive Date: 20101105
  Receipt Date: 20100825
  Transmission Date: 20110411
  Serious: Yes (Death)
  Sender: FDA-Public Use
  Company Number: VE-PFIZER INC-2010139957

PATIENT
  Age: 78 Year
  Sex: Male

DRUGS (3)
  1. CADUET [Suspect]
     Indication: HYPERCHOLESTEROLAEMIA
     Dosage: UNK
     Route: 048
  2. CADUET [Suspect]
     Indication: HYPERTENSION
  3. CADUET [Suspect]
     Indication: HYPERTRIGLYCERIDAEMIA

REACTIONS (1)
  - DEATH [None]
